FAERS Safety Report 4721130-0 (Version None)
Quarter: 2005Q3

REPORT INFORMATION
  Report Type: 
  Country: None (occurrence: None)
  Receive Date: 20050719
  Receipt Date: 20041019
  Transmission Date: 20060218
  Serious: Yes (Other)
  Sender: FDA-Public Use
  Company Number: 2004234736US

PATIENT
  Sex: Male

DRUGS (1)
  1. CELEBREX [Suspect]
     Dosage: 300 MG, QD, ORAL
     Route: 048
     Dates: start: 20040915

REACTIONS (1)
  - RECTAL HAEMORRHAGE [None]
